FAERS Safety Report 8370661-3 (Version None)
Quarter: 2012Q2

REPORT INFORMATION
  Report Type: 
  Country: None (occurrence: None)
  Receive Date: 20120518
  Receipt Date: 20120510
  Transmission Date: 20120825
  Serious: Yes (Hospitalization)
  Sender: FDA-Public Use
  Company Number: US-US-EMD SERONO, INC.-7114819

PATIENT
  Sex: Female
  Weight: 105 kg

DRUGS (13)
  1. REBIF [Suspect]
     Indication: MULTIPLE SCLEROSIS
     Route: 058
     Dates: start: 20120207
  2. GABAPENTIN [Concomitant]
  3. LAMOTRIGINE [Concomitant]
  4. DIAZEPAM [Concomitant]
     Indication: MUSCLE SPASMS
  5. OXYCODONE HCL [Concomitant]
     Indication: PAIN
  6. CYMBALTA [Concomitant]
     Indication: DEPRESSION
  7. REBIF [Suspect]
     Route: 058
     Dates: start: 20120302
  8. REBIF [Suspect]
     Route: 058
  9. PRILOSEC [Concomitant]
     Indication: ABDOMINAL DISCOMFORT
  10. DETROL LA [Concomitant]
     Indication: URINARY INCONTINENCE
  11. LIDODERM [Concomitant]
     Indication: PAIN
  12. CALCIUM [Concomitant]
  13. VITAMIN E [Concomitant]

REACTIONS (1)
  - CONVULSION [None]
